FAERS Safety Report 6535806-6 (Version None)
Quarter: 2010Q1

REPORT INFORMATION
  Report Type: 
  Country: None (occurrence: None)
  Receive Date: 20100113
  Receipt Date: 20100108
  Transmission Date: 20100710
  Serious: Yes (Hospitalization)
  Sender: FDA-Public Use
  Company Number: DE-AMGEN-US385310

PATIENT
  Sex: Male

DRUGS (4)
  1. ENBREL [Suspect]
     Indication: RHEUMATOID ARTHRITIS
     Route: 058
     Dates: end: 20091001
  2. METHOTREXATE [Concomitant]
     Dosage: UNKNOWN
     Route: 065
  3. FOLIC ACID [Concomitant]
     Dosage: UNKNOWN
     Route: 065
  4. CORTISONE [Concomitant]
     Dosage: UNKNOWN
     Route: 065

REACTIONS (1)
  - OSTEOARTHRITIS [None]
